FAERS Safety Report 6936263-8 (Version None)
Quarter: 2010Q3

REPORT INFORMATION
  Report Type: 
  Country: None (occurrence: None)
  Receive Date: 20100823
  Receipt Date: 20100813
  Transmission Date: 20110219
  Serious: Yes (Hospitalization)
  Sender: FDA-Public Use
  Company Number: TW-ABBOTT-10P-153-0663910-00

PATIENT
  Age: 28 Year
  Sex: Male

DRUGS (1)
  1. ADALIMUMAB [Suspect]
     Indication: ARTHRITIS REACTIVE
     Dates: start: 20071001, end: 20071101

REACTIONS (2)
  - GLOMERULONEPHRITIS [None]
  - RENAL FAILURE [None]
